FAERS Safety Report 10758209 (Version 8)
Quarter: 2016Q2

REPORT INFORMATION
  Report Type: Spontaneous
  Country: US (occurrence: US)
  Receive Date: 20150203
  Receipt Date: 20160408
  Transmission Date: 20160815
  Serious: Yes (Hospitalization, Other)
  Sender: FDA-Public Use
  Company Number: US-009507513-1502USA000583

PATIENT
  Sex: Male
  Weight: 80.73 kg

DRUGS (4)
  1. ALENDRONATE SODIUM. [Suspect]
     Active Substance: ALENDRONATE SODIUM
     Indication: OSTEOPOROSIS PROPHYLAXIS
     Dosage: 70 MG, QW
     Route: 048
     Dates: start: 20101214, end: 201101
  2. FOSAMAX [Suspect]
     Active Substance: ALENDRONATE SODIUM
     Indication: OSTEOPOROSIS PROPHYLAXIS
     Dosage: 70 MG, QW
     Route: 048
     Dates: start: 200601, end: 201003
  3. FOSAMAX [Suspect]
     Active Substance: ALENDRONATE SODIUM
     Indication: OSTEITIS DEFORMANS
     Dosage: 70 MG, QW
     Route: 048
     Dates: start: 200409
  4. ALENDRONATE SODIUM. [Suspect]
     Active Substance: ALENDRONATE SODIUM
     Indication: OSTEOPOROSIS PROPHYLAXIS
     Dosage: 70 MG, QW
     Route: 048
     Dates: start: 20060620, end: 201104

REACTIONS (17)
  - Skin cancer [Unknown]
  - Bundle branch block right [Unknown]
  - Spinal laminectomy [Unknown]
  - Muscle spasms [Unknown]
  - QRS axis abnormal [Unknown]
  - Limb deformity [Unknown]
  - Cholecystectomy [Unknown]
  - Vascular graft [Unknown]
  - Femur fracture [Unknown]
  - Osteoporosis [Unknown]
  - Hypertension [Unknown]
  - Osteoarthritis [Unknown]
  - Tooth disorder [Unknown]
  - Blood cholesterol increased [Unknown]
  - Incision site pain [Unknown]
  - Actinic keratosis [Unknown]
  - Adenotonsillectomy [Unknown]

NARRATIVE: CASE EVENT DATE: 2010
